FAERS Safety Report 9304582 (Version 1)
Quarter: 2013Q2

REPORT INFORMATION
  Report Type: Spontaneous
  Country: CL (occurrence: CL)
  Receive Date: 20130523
  Receipt Date: 20130523
  Transmission Date: 20140414
  Serious: Yes (Other)
  Sender: FDA-Public Use
  Company Number: CL-AMGEN-CHLSP2013035869

PATIENT
  Sex: Male

DRUGS (2)
  1. NEULASTIM [Suspect]
     Indication: NEUTROPENIA
     Dosage: UNK
     Route: 065
  2. CHEMOTHERAPEUTICS [Concomitant]
     Indication: NON-HODGKIN^S LYMPHOMA
     Dosage: UNK

REACTIONS (1)
  - Neutropenia [Unknown]
